FAERS Safety Report 5999581-6 (Version None)
Quarter: 2008Q4

REPORT INFORMATION
  Report Type: 
  Country: None (occurrence: None)
  Receive Date: 20081211
  Receipt Date: 20081126
  Transmission Date: 20090506
  Serious: Yes (Hospitalization)
  Sender: FDA-Public Use
  Company Number: 2008002680

PATIENT
  Age: 26 Year
  Sex: Male

DRUGS (8)
  1. ERLOTINIB         (ERLOTINIB) [Suspect]
     Indication: LUNG SQUAMOUS CELL CARCINOMA STAGE UNSPECIFIED
     Dosage: (150 MG, QD), ORAL
     Route: 048
     Dates: start: 20080717
  2. OXYCONTIN [Suspect]
     Dosage: (20 MG, QD), ORAL
     Route: 048
  3. NOVAMIN (PROCHLORPERAZINE) [Concomitant]
  4. MORPHINE [Concomitant]
  5. MAGMITT (MAGNESIUM OXIDE) [Concomitant]
  6. PURSENNID (SENNA LEAF) [Concomitant]
  7. LOXONIN (LOXOPROFEN SODIUM) [Concomitant]
  8. MUCOSTA (REBAMIPIDE) [Concomitant]

REACTIONS (3)
  - ANAEMIA [None]
  - BONE MARROW FAILURE [None]
  - CONDITION AGGRAVATED [None]
